FAERS Safety Report 5042396-6 (Version None)
Quarter: 2006Q3

REPORT INFORMATION
  Report Type: 
  Country: None (occurrence: None)
  Receive Date: 20060705
  Receipt Date: 20060628
  Transmission Date: 20061208
  Serious: Yes (Death)
  Sender: FDA-Public Use
  Company Number: US-BRISTOL-MYERS SQUIBB COMPANY-13427315

PATIENT
  Age: 25 Year
  Sex: Male

DRUGS (4)
  1. SUSTIVA [Suspect]
     Indication: ACQUIRED IMMUNODEFICIENCY SYNDROME
  2. TRUVADA [Concomitant]
  3. KEPPRA [Concomitant]
  4. DARAPRIM [Concomitant]

REACTIONS (1)
  - DEATH [None]
